FAERS Safety Report 9270043 (Version 9)
Quarter: 2015Q3

REPORT INFORMATION
  Report Type: Report from Study
  Country: US (occurrence: US)
  Receive Date: 20130503
  Receipt Date: 20150707
  Transmission Date: 20151125
  Serious: Yes (Hospitalization, Other)
  Sender: FDA-Public Use
  Company Number: US-SANOFI-AVENTIS-2013SA034556

PATIENT
  Age: 56 Year
  Sex: Female

DRUGS (3)
  1. AUBAGIO [Suspect]
     Active Substance: TERIFLUNOMIDE
     Indication: MULTIPLE SCLEROSIS
     Route: 048
     Dates: start: 20130126, end: 20130408
  2. VITAMIN D [Concomitant]
     Active Substance: CHOLECALCIFEROL
     Dosage: MASSIVE DOSE
  3. AUBAGIO [Suspect]
     Active Substance: TERIFLUNOMIDE
     Indication: MULTIPLE SCLEROSIS
     Route: 048
     Dates: start: 20150108, end: 201503

REACTIONS (17)
  - Gait disturbance [Unknown]
  - Migraine [Unknown]
  - Nausea [Unknown]
  - Nerve injury [Unknown]
  - Malaise [Unknown]
  - Impaired work ability [Unknown]
  - Headache [Unknown]
  - Hypertension [Unknown]
  - Dizziness [Unknown]
  - Radial nerve injury [Unknown]
  - Amnesia [Unknown]
  - Cognitive disorder [Recovered/Resolved]
  - Muscular weakness [Unknown]
  - Diarrhoea [Unknown]
  - Insomnia [Unknown]
  - Hiccups [Unknown]
  - Stress [Unknown]

NARRATIVE: CASE EVENT DATE: 201303
